FAERS Safety Report 14403513 (Version 2)
Quarter: 2018Q1

REPORT INFORMATION
  Report Type: Spontaneous
  Country: JP (occurrence: JP)
  Receive Date: 20180117
  Receipt Date: 20180119
  Transmission Date: 20180509
  Serious: Yes (Other)
  Sender: FDA-Public Use
  Company Number: JP-PFIZER INC-2018018340

PATIENT
  Age: 89 Year
  Sex: Female
  Weight: 48 kg

DRUGS (6)
  1. TRAMSET [Suspect]
     Active Substance: ACETAMINOPHEN\TRAMADOL HYDROCHLORIDE
     Dosage: 2 DF, 1X/DAY
     Route: 048
     Dates: start: 20171225, end: 20171229
  2. MUCOSTA [Concomitant]
     Active Substance: REBAMIPIDE
     Dosage: UNK
     Route: 048
     Dates: end: 20171229
  3. VITAMINS NOS [Concomitant]
     Active Substance: VITAMINS
     Dosage: UNK
     Route: 048
     Dates: end: 20171229
  4. VOLTAREN [Suspect]
     Active Substance: DICLOFENAC SODIUM
     Dosage: UNK UNK, AS NEEDED
     Route: 054
     Dates: start: 201712
  5. PURSENNID /00571902/ [Suspect]
     Active Substance: SENNOSIDES A AND B
     Dosage: UNK UNK, UNKNOWN FREQ.
     Route: 048
     Dates: end: 20171229
  6. CELECOX [Suspect]
     Active Substance: CELECOXIB
     Indication: LUMBAR SPINAL STENOSIS
     Dosage: 100 MG, 2X/DAY
     Dates: start: 20171223, end: 20171229

REACTIONS (3)
  - Off label use [Unknown]
  - Drug eruption [Recovered/Resolved]
  - Erythema [Recovered/Resolved]

NARRATIVE: CASE EVENT DATE: 20171223
